FAERS Safety Report 19015050 (Version 2)
Quarter: 2021Q1

REPORT INFORMATION
  Report Type: Spontaneous
  Country: IN (occurrence: IN)
  Receive Date: 20210316
  Receipt Date: 20210329
  Transmission Date: 20210420
  Serious: Yes (Hospitalization, Other)
  Sender: FDA-Public Use
  Company Number: IN-PFIZER INC-2019147174

PATIENT
  Age: 47 Year
  Sex: Female

DRUGS (2)
  1. CRIZALK [Suspect]
     Active Substance: CRIZOTINIB
     Indication: NON-SMALL CELL LUNG CANCER METASTATIC
     Dosage: 250 MG, 2X/DAY
     Route: 048
     Dates: start: 20141129
  2. DIVALPROEX [Concomitant]
     Active Substance: DIVALPROEX SODIUM
     Dosage: UNK

REACTIONS (20)
  - Electrocardiogram ST segment elevation [Unknown]
  - Oropharyngeal pain [Unknown]
  - Neoplasm progression [Unknown]
  - Swelling [Unknown]
  - Nausea [Unknown]
  - Haemoglobin decreased [Unknown]
  - Odynophagia [Unknown]
  - Chest discomfort [Unknown]
  - Blood pressure decreased [Unknown]
  - Tongue movement disturbance [Unknown]
  - Peripheral swelling [Unknown]
  - Oedema peripheral [Unknown]
  - Abdominal pain upper [Unknown]
  - Abdominal pain [Unknown]
  - Vertigo [Recovered/Resolved]
  - Tri-iodothyronine decreased [Unknown]
  - Cough [Unknown]
  - Vomiting [Unknown]
  - Headache [Unknown]
  - Pallor [Unknown]
